FAERS Safety Report 14136821 (Version 1)
Quarter: 2017Q4

REPORT INFORMATION
  Report Type: Spontaneous
  Country: US (occurrence: None)
  Receive Date: 20171027
  Receipt Date: 20171027
  Transmission Date: 20180321
  Serious: No
  Sender: FDA-Public Use
  Company Number: None

PATIENT
  Age: 52 Year
  Sex: Male

DRUGS (1)
  1. DESMOPRESSIN ACETATE 10MCG/0.1ML [Suspect]
     Active Substance: DESMOPRESSIN ACETATE
     Route: 045

REACTIONS (4)
  - Product container seal issue [None]
  - Product tampering [None]
  - Product packaging issue [None]
  - Medication residue present [None]

NARRATIVE: CASE EVENT DATE: 20170928
